FAERS Safety Report 16862538 (Version 1)
Quarter: 2019Q3

REPORT INFORMATION
  Report Type: Report from Study
  Country: None (occurrence: BR)
  Receive Date: 20190927
  Receipt Date: 20190927
  Transmission Date: 20191005
  Serious: Yes (Other)
  Sender: FDA-Public Use
  Company Number: BR-ABBVIE-19K-020-2686619-00

PATIENT
  Age: 39 Year
  Sex: Male
  Weight: 82 kg

DRUGS (3)
  1. HUMIRA [Suspect]
     Active Substance: ADALIMUMAB
     Indication: ANKYLOSING SPONDYLITIS
     Route: 058
     Dates: start: 20110515
  2. HUMIRA [Suspect]
     Active Substance: ADALIMUMAB
     Route: 058
  3. HUMIRA [Suspect]
     Active Substance: ADALIMUMAB
     Indication: RHEUMATOID ARTHRITIS
     Route: 058

REACTIONS (22)
  - Road traffic accident [Unknown]
  - Femur fracture [Recovered/Resolved]
  - Immunodeficiency [Unknown]
  - Hepatic steatosis [Recovering/Resolving]
  - Limb discomfort [Unknown]
  - Musculoskeletal discomfort [Recovered/Resolved]
  - Muscle atrophy [Unknown]
  - Injection site discomfort [Unknown]
  - Gait disturbance [Unknown]
  - Femur fracture [Recovered/Resolved]
  - Joint effusion [Recovered/Resolved]
  - Joint range of motion decreased [Unknown]
  - Nephrolithiasis [Recovered/Resolved]
  - Musculoskeletal pain [Recovered/Resolved]
  - Rheumatic disorder [Unknown]
  - Joint swelling [Recovered/Resolved]
  - Mobility decreased [Unknown]
  - Arthralgia [Recovered/Resolved]
  - Musculoskeletal pain [Unknown]
  - Renal colic [Recovered/Resolved]
  - Rehabilitation therapy [Unknown]
  - Pain [Unknown]

NARRATIVE: CASE EVENT DATE: 2018
